FAERS Safety Report 5222530-5 (Version None)
Quarter: 2006Q4

REPORT INFORMATION
  Report Type: 
  Country: None (occurrence: None)
  Receive Date: 20061201
  Receipt Date: 20060706
  Transmission Date: 20070319
  Serious: No
  Sender: FDA-Public Use
  Company Number: 2006PV017059

PATIENT
  Age: 63 Year
  Sex: Male
  Weight: 151.955 kg

DRUGS (5)
  1. BYETTA [Suspect]
     Indication: DIABETES MELLITUS NON-INSULIN-DEPENDENT
     Dosage: 5 MCG;BID;SC
     Route: 058
     Dates: start: 20060401, end: 20060601
  2. NOVOLOG MIX 70/30 [Concomitant]
  3. NOVOLOG [Concomitant]
  4. METFORMIN HCL [Concomitant]
  5. ACTOS [Concomitant]

REACTIONS (2)
  - NAUSEA [None]
  - WEIGHT DECREASED [None]
